FAERS Safety Report 6261748-X (Version None)
Quarter: 2009Q3

REPORT INFORMATION
  Report Type: 
  Country: None (occurrence: None)
  Receive Date: 20090702
  Receipt Date: 20090306
  Transmission Date: 20100115
  Serious: No
  Sender: FDA-Public Use
  Company Number: 1000005103

PATIENT
  Age: 55 Year
  Sex: Male

DRUGS (11)
  1. BYSTOLIC [Suspect]
     Indication: SYSTOLIC HYPERTENSION
     Dosage: 5 MG (5 MG, 1 IN 1, ORAL;  2.5 MG (2.5 MG, 1 IN 1 D),ORAL
     Route: 048
     Dates: start: 20090101, end: 20090101
  2. BYSTOLIC [Suspect]
     Indication: SYSTOLIC HYPERTENSION
     Dosage: 5 MG (5 MG, 1 IN 1, ORAL;  2.5 MG (2.5 MG, 1 IN 1 D),ORAL
     Route: 048
     Dates: start: 20090101, end: 20090101
  3. BYSTOLIC [Suspect]
     Indication: SYSTOLIC HYPERTENSION
     Dosage: 5 MG (5 MG,  1 IN 1, D), ORAL
     Route: 048
     Dates: start: 20090101, end: 20090226
  4. BYSTOLIC [Suspect]
     Indication: SYSTOLIC HYPERTENSION
     Dosage: 2.5 MG (2.5 MG, 1 IN 1 D),ORAL
     Route: 048
     Dates: start: 20090227
  5. PREVACID [Concomitant]
  6. ASPIRIN [Concomitant]
  7. PLAVIX [Concomitant]
  8. TYLENOL [Concomitant]
  9. IMMUNE GLOBULIN INTRAVENOUS (HUMAN) [Concomitant]
  10. RAPAMUNE [Concomitant]
  11. PREDNISONE TAB [Concomitant]

REACTIONS (3)
  - ASTHENIA [None]
  - BLOOD PRESSURE DIASTOLIC DECREASED [None]
  - MUSCULOSKELETAL PAIN [None]
